FAERS Safety Report 4414795-4 (Version None)
Quarter: 2004Q3

REPORT INFORMATION
  Report Type: 
  Country: None (occurrence: None)
  Receive Date: 20040804
  Receipt Date: 20031010
  Transmission Date: 20050211
  Serious: Yes (Other)
  Sender: FDA-Public Use
  Company Number: US-BRISTOL-MYERS SQUIBB COMPANY-12408621

PATIENT
  Age: 47 Year
  Sex: Male
  Weight: 115 kg

DRUGS (7)
  1. GLUCOVANCE [Suspect]
     Indication: DIABETES MELLITUS NON-INSULIN-DEPENDENT
     Route: 048
     Dates: start: 20031008
  2. PROZAC [Concomitant]
  3. REMERON [Concomitant]
  4. SEROQUEL [Concomitant]
  5. LITHIUM [Concomitant]
  6. VALIUM [Concomitant]
  7. LOPID [Concomitant]

REACTIONS (1)
  - BLOOD GLUCOSE INCREASED [None]
